FAERS Safety Report 8432209-4 (Version None)
Quarter: 2012Q2

REPORT INFORMATION
  Report Type: 
  Country: None (occurrence: None)
  Receive Date: 20120607
  Receipt Date: 20120523
  Transmission Date: 20120825
  Serious: Yes (Hospitalization)
  Sender: FDA-Public Use
  Company Number: 2012P1036625

PATIENT
  Age: 23 Year
  Sex: Female
  Weight: 60.8727 kg

DRUGS (17)
  1. OMEPRAZOLE [Concomitant]
  2. TOBRAMYCIN SULPHATE [Concomitant]
  3. CEFTAZIDIME [Suspect]
     Indication: INFECTION
     Dosage: 12 GM;IV; 12 GM;IV; 12 GM;IV; 12 GM;IV; 12 GM;IV; 12 GM;IV; 6 GM;IV
     Route: 042
     Dates: start: 20081208, end: 20081231
  4. CEFTAZIDIME [Suspect]
     Indication: INFECTION
     Dosage: 12 GM;IV; 12 GM;IV; 12 GM;IV; 12 GM;IV; 12 GM;IV; 12 GM;IV; 6 GM;IV
     Route: 042
     Dates: start: 20091103, end: 20091117
  5. CEFTAZIDIME [Suspect]
     Indication: INFECTION
     Dosage: 12 GM;IV; 12 GM;IV; 12 GM;IV; 12 GM;IV; 12 GM;IV; 12 GM;IV; 6 GM;IV
     Route: 042
     Dates: start: 20101002, end: 20101017
  6. CEFTAZIDIME [Suspect]
     Indication: INFECTION
     Dosage: 12 GM;IV; 12 GM;IV; 12 GM;IV; 12 GM;IV; 12 GM;IV; 12 GM;IV; 6 GM;IV
     Route: 042
     Dates: start: 20110120, end: 20110203
  7. CEFTAZIDIME [Suspect]
     Indication: INFECTION
     Dosage: 12 GM;IV; 12 GM;IV; 12 GM;IV; 12 GM;IV; 12 GM;IV; 12 GM;IV; 6 GM;IV
     Route: 042
     Dates: start: 20120402, end: 20120401
  8. CEFTAZIDIME [Suspect]
     Indication: INFECTION
     Dosage: 12 GM;IV; 12 GM;IV; 12 GM;IV; 12 GM;IV; 12 GM;IV; 12 GM;IV; 6 GM;IV
     Route: 042
     Dates: start: 20100621, end: 20100705
  9. CEFTAZIDIME [Suspect]
     Indication: INFECTION
     Dosage: 12 GM;IV; 12 GM;IV; 12 GM;IV; 12 GM;IV; 12 GM;IV; 12 GM;IV; 6 GM;IV
     Route: 042
     Dates: start: 20110513, end: 20110516
  10. AZITHROMYCIN [Concomitant]
  11. AZTREONAM [Concomitant]
  12. TRICILEST [Concomitant]
  13. ACETAMINOPHEN [Concomitant]
  14. MEROPENEM [Concomitant]
  15. ISOTRETINOIN [Concomitant]
  16. ALBUTEROL SULFATE AUTOHALER [Concomitant]
  17. COLECALCIFEROL [Concomitant]

REACTIONS (9)
  - PHOSPHENES [None]
  - INFUSION RELATED REACTION [None]
  - PARAESTHESIA [None]
  - DYSPNOEA EXERTIONAL [None]
  - NAUSEA [None]
  - CHEST PAIN [None]
  - MIGRAINE WITH AURA [None]
  - HEADACHE [None]
  - VISUAL FIELD DEFECT [None]
